FAERS Safety Report 7130328-6 (Version None)
Quarter: 2010Q4

REPORT INFORMATION
  Report Type: 
  Country: None (occurrence: None)
  Receive Date: 20101201
  Receipt Date: 20101124
  Transmission Date: 20110411
  Serious: Yes (Death, Hospitalization)
  Sender: FDA-Public Use
  Company Number: US-SANOFI-AVENTIS-2010SA064290

PATIENT
  Age: 77 Year
  Sex: Male

DRUGS (5)
  1. TAXOTERE [Suspect]
     Indication: PROSTATE CANCER
     Route: 041
     Dates: start: 20100520, end: 20100520
  2. TAXOTERE [Suspect]
     Route: 041
     Dates: start: 20100923, end: 20100923
  3. BLINDED THERAPY [Suspect]
     Indication: PROSTATE CANCER
     Route: 048
     Dates: start: 20100520, end: 20101004
  4. PREDNISONE [Suspect]
     Indication: PROSTATE CANCER
     Route: 048
  5. CYANOCOBALAMIN [Concomitant]
     Route: 065

REACTIONS (2)
  - CARDIAC ARREST [None]
  - PNEUMONITIS [None]
